FAERS Safety Report 14714803 (Version 4)
Quarter: 2018Q2

REPORT INFORMATION
  Report Type: Report from Study
  Country: US (occurrence: US)
  Receive Date: 20180404
  Receipt Date: 20180525
  Transmission Date: 20180711
  Serious: Yes (Other)
  Sender: FDA-Public Use
  Company Number: US-AMGEN-USASL2018043501

PATIENT
  Sex: Female

DRUGS (4)
  1. ENBREL [Suspect]
     Active Substance: ETANERCEPT
     Indication: RHEUMATOID ARTHRITIS
     Dosage: 50 MG, QWK
     Route: 065
  2. MTX [Suspect]
     Active Substance: METHOTREXATE SODIUM
     Indication: PRODUCT USED FOR UNKNOWN INDICATION
     Dosage: UNK
     Route: 065
  3. ENBREL [Suspect]
     Active Substance: ETANERCEPT
     Dosage: 50 MG, QWK
     Route: 065
     Dates: start: 20180329
  4. ENBREL [Suspect]
     Active Substance: ETANERCEPT
     Dosage: 50 MG, QWK
     Route: 065
     Dates: start: 20180315, end: 20180322

REACTIONS (18)
  - Road traffic accident [Unknown]
  - Weight decreased [Unknown]
  - Back pain [Unknown]
  - Joint injury [Unknown]
  - Arthropathy [Unknown]
  - Stress [Unknown]
  - Muscle rupture [Unknown]
  - Red blood cell sedimentation rate increased [Unknown]
  - Hypersensitivity [Unknown]
  - Meniscus injury [Unknown]
  - Fracture delayed union [Not Recovered/Not Resolved]
  - Bronchitis [Unknown]
  - Asthma [Unknown]
  - Sinusitis [Recovering/Resolving]
  - Bursitis [Not Recovered/Not Resolved]
  - Fall [Unknown]
  - Pain [Not Recovered/Not Resolved]
  - Hand fracture [Unknown]

NARRATIVE: CASE EVENT DATE: 2012
